FAERS Safety Report 8598486 (Version 3)
Quarter: 2013Q4

REPORT INFORMATION
  Report Type: Spontaneous
  Country: US (occurrence: US)
  Receive Date: 20120605
  Receipt Date: 20131202
  Transmission Date: 20140711
  Serious: No
  Sender: FDA-Public Use
  Company Number: US-AMGEN-USASP2012031749

PATIENT
  Age: 65 Year
  Sex: Female

DRUGS (4)
  1. ENBREL [Suspect]
     Indication: RHEUMATOID ARTHRITIS
     Dosage: 50 MG, QWK
     Route: 065
     Dates: start: 20060512
  2. ENBREL [Suspect]
     Dosage: UNK
     Route: 065
  3. METHOTREXATE [Concomitant]
     Dosage: 1 MG, UNK
     Dates: start: 20060512
  4. PLAQUENIL                          /00072602/ [Concomitant]
     Dosage: 250 MG, QD FOR OVER 18 YEARS
     Dates: start: 201210

REACTIONS (9)
  - Rheumatoid arthritis [Recovered/Resolved]
  - Fall [Recovered/Resolved]
  - Arthralgia [Recovered/Resolved]
  - Rash pruritic [Not Recovered/Not Resolved]
  - Musculoskeletal stiffness [Not Recovered/Not Resolved]
  - Skin ulcer [Not Recovered/Not Resolved]
  - Joint injury [Recovered/Resolved]
  - Joint effusion [Recovered/Resolved]
  - Bronchitis [Recovered/Resolved]
